FAERS Safety Report 15694490 (Version 1)
Quarter: 2018Q4

REPORT INFORMATION
  Report Type: Spontaneous
  Country: US (occurrence: US)
  Receive Date: 20181206
  Receipt Date: 20181206
  Transmission Date: 20190205
  Serious: No
  Sender: FDA-Public Use
  Company Number: US-NOVOPROD-585261

PATIENT
  Age: 74 Year
  Sex: Female

DRUGS (1)
  1. NOVOLIN 70/30 [Suspect]
     Active Substance: INSULIN HUMAN
     Indication: TYPE 2 DIABETES MELLITUS
     Dosage: 25 UNITS IN THE AM, THEN A SLIDING SCALE BETWEEN 10-20 UNITS AT NIGHT
     Route: 058
     Dates: start: 2016

REACTIONS (8)
  - Pruritus [Recovered/Resolved]
  - Urticaria [Recovered/Resolved]
  - Blood glucose increased [Not Recovered/Not Resolved]
  - Rash generalised [Recovered/Resolved]
  - Blood glucose decreased [Recovered/Resolved]
  - Haemorrhage [Recovered/Resolved]
  - Injection site pruritus [Recovering/Resolving]
  - Product quality issue [Recovered/Resolved]

NARRATIVE: CASE EVENT DATE: 2016
